FAERS Safety Report 7692120 (Version 4)
Quarter: 2014Q1

REPORT INFORMATION
  Report Type: Spontaneous
  Country: US (occurrence: US)
  Receive Date: 20101204
  Receipt Date: 20140121
  Transmission Date: 20141002
  Serious: Yes (Hospitalization, Other)
  Sender: FDA-Public Use
  Company Number: US-BAYER-2010-000848

PATIENT
  Age: 21 Year
  Sex: Female
  Weight: 74 kg

DRUGS (1)
  1. YASMIN [Suspect]
     Dosage: UNK
     Dates: start: 200303, end: 200307

REACTIONS (2)
  - Gallbladder injury [None]
  - Cholecystitis chronic [None]
